FAERS Safety Report 10466318 (Version 1)
Quarter: 2014Q3

REPORT INFORMATION
  Report Type: Spontaneous
  Country: US (occurrence: None)
  Receive Date: 20140918
  Receipt Date: 20140918
  Transmission Date: 20150326
  Serious: Yes (Other)
  Sender: FDA-Public Use
  Company Number: ADE #14

PATIENT
  Age: 27 Year
  Sex: Female

DRUGS (1)
  1. PRENATE RESTORE [Suspect]
     Active Substance: .ALPHA.-TOCOPHEROL ACETATE, DL-\ASCORBIC ACID\BIOTIN\CALCIUM CARBONATE\CHOLECALCIFEROL\CYANOCOBALAMIN\DOCONEXENT\FERROUS FUMARATE\FOLIC ACID\LACTIC ACID\MAGNESIUM OXIDE\PYRIDOXINE HYDROCHLORIDE
     Indication: SUPPLEMENTATION THERAPY
     Dosage: 1 CAP
     Route: 048

REACTIONS (5)
  - Convulsion [None]
  - No reaction on previous exposure to drug [None]
  - Exposure during pregnancy [None]
  - Exposure during breast feeding [None]
  - Product quality issue [None]

NARRATIVE: CASE EVENT DATE: 20140907
